FAERS Safety Report 20975710 (Version 1)
Quarter: 2022Q2

REPORT INFORMATION
  Report Type: Spontaneous
  Country: JP (occurrence: JP)
  Receive Date: 20220617
  Receipt Date: 20220617
  Transmission Date: 20220721
  Serious: Yes (Other)
  Sender: FDA-Public Use
  Company Number: JP-ELI_LILLY_AND_COMPANY-JP202206005006AA

PATIENT
  Age: 72 Year
  Sex: Female

DRUGS (1)
  1. OLANZAPINE [Suspect]
     Active Substance: OLANZAPINE
     Indication: Dementia with Lewy bodies
     Dosage: 5 MG, DAILY
     Route: 065

REACTIONS (5)
  - Immobilisation syndrome [Recovering/Resolving]
  - Pneumonia aspiration [Recovered/Resolved]
  - Parkinsonism [Unknown]
  - Deep vein thrombosis [Recovered/Resolved]
  - Off label use [Unknown]
